FAERS Safety Report 8356658-8 (Version None)
Quarter: 2012Q2

REPORT INFORMATION
  Report Type: 
  Country: None (occurrence: None)
  Receive Date: 20120514
  Receipt Date: 20120509
  Transmission Date: 20120825
  Serious: Yes (Other)
  Sender: FDA-Public Use
  Company Number: PHHY2012CA040166

PATIENT
  Sex: Female

DRUGS (1)
  1. ZOMETA [Suspect]
     Indication: BREAST CANCER
     Dosage: 4 MG, EVERY 6 MONTHS
     Route: 042
     Dates: start: 20090425

REACTIONS (1)
  - LOSS OF CONSCIOUSNESS [None]
